FAERS Safety Report 4291208-7 (Version None)
Quarter: 2004Q1

REPORT INFORMATION
  Report Type: 
  Country: None (occurrence: None)
  Receive Date: 20040211
  Receipt Date: 20031111
  Transmission Date: 20041129
  Serious: No
  Sender: FDA-Public Use
  Company Number: US-GLAXOSMITHKLINE-A0439474A

PATIENT
  Sex: Female

DRUGS (1)
  1. PAXIL [Suspect]
     Dosage: 30MG PER DAY
     Dates: start: 20030901

REACTIONS (2)
  - CONSTIPATION [None]
  - SEXUAL DYSFUNCTION [None]
